FAERS Safety Report 4555157-9 (Version None)
Quarter: 2005Q1

REPORT INFORMATION
  Report Type: 
  Country: None (occurrence: None)
  Receive Date: 20041228
  Receipt Date: 20040628
  Transmission Date: 20050727
  Serious: Yes (Hospitalization)
  Sender: FDA-Public Use
  Company Number: PHEH2004US07022

PATIENT
  Age: 70 Year
  Sex: Male

DRUGS (1)
  1. AREDIA [Suspect]
     Dosage: 80 MG ^Q4^, IV INFUSION
     Route: 042
     Dates: start: 19981101

REACTIONS (3)
  - MULTIPLE MYELOMA [None]
  - OSTEONECROSIS [None]
  - PAIN IN JAW [None]
